FAERS Safety Report 8329945-7 (Version None)
Quarter: 2012Q2

REPORT INFORMATION
  Report Type: 
  Country: None (occurrence: None)
  Receive Date: 20120502
  Receipt Date: 20091130
  Transmission Date: 20120825
  Serious: No
  Sender: FDA-Public Use
  Company Number: US-TEVA-2009029398

PATIENT
  Sex: Female
  Weight: 70.37 kg

DRUGS (5)
  1. NUVIGIL [Suspect]
     Indication: SLEEP APNOEA SYNDROME
     Dosage: 250 MILLIGRAM;
     Route: 048
     Dates: start: 20091120, end: 20091121
  2. WATER PILL [Concomitant]
  3. DEPAKOTE [Concomitant]
  4. PLAVIX [Concomitant]
  5. POTASSIUM CHLORIDE [Concomitant]

REACTIONS (2)
  - FEELING DRUNK [None]
  - DIZZINESS [None]
